FAERS Safety Report 25034922 (Version 2)
Quarter: 2025Q1

REPORT INFORMATION
  Report Type: Spontaneous
  Country: NL (occurrence: NL)
  Receive Date: 20250304
  Receipt Date: 20250310
  Transmission Date: 20250408
  Serious: Yes (Hospitalization, Disabling, Other)
  Sender: CHEPLAPHARM
  Company Number: None

PATIENT
  Age: 33 Year
  Sex: Male
  Weight: 120 kg

DRUGS (4)
  1. OLANZAPINE [Suspect]
     Active Substance: OLANZAPINE
     Indication: Psychotic disorder
     Dosage: EVERY 1 DAY?DAILY DOSE: 20 MILLIGRAM
     Route: 048
     Dates: start: 20110101, end: 20231101
  2. OLANZAPINE PAMOATE [Suspect]
     Active Substance: OLANZAPINE PAMOATE
     Indication: Psychotic disorder
     Dosage: EVERY 1 MONTH; 1 DOSAGE FORM. OLANZAPINE PDR V INJSUSP 210MG / ZYPADHERA INJPDR MVA FLACON 210MG ...
     Dates: start: 20230302, end: 20241128
  3. AMPHETAMINE [Suspect]
     Active Substance: AMPHETAMINE
  4. COCAINE [Suspect]
     Active Substance: COCAINE

REACTIONS (1)
  - Obsessive thoughts [Not Recovered/Not Resolved]
